FAERS Safety Report 6141883-7 (Version None)
Quarter: 2009Q1

REPORT INFORMATION
  Report Type: 
  Country: None (occurrence: None)
  Receive Date: 20090331
  Receipt Date: 20090318
  Transmission Date: 20090719
  Serious: Yes (Other)
  Sender: FDA-Public Use
  Company Number: DE-2009-0606

PATIENT
  Age: 61 Year
  Sex: Male

DRUGS (4)
  1. NAVELBINE [Suspect]
     Indication: LUNG CANCER METASTATIC
     Dosage: 25 MG/M2 IV
     Route: 042
     Dates: start: 19991201
  2. GEMCITABINE HCL [Concomitant]
  3. METOCLOPRAMIDE [Concomitant]
  4. DEXAMETHASONE 4MG TAB [Concomitant]

REACTIONS (4)
  - FATIGUE [None]
  - PALMAR-PLANTAR ERYTHRODYSAESTHESIA SYNDROME [None]
  - PARAESTHESIA [None]
  - SKIN EXFOLIATION [None]
